FAERS Safety Report 9004672 (Version 2)
Quarter: 2013Q1

REPORT INFORMATION
  Report Type: Spontaneous
  Country: US (occurrence: US)
  Receive Date: 20130109
  Receipt Date: 20130131
  Transmission Date: 20140127
  Serious: No
  Sender: FDA-Public Use
  Company Number: US-PFIZER INC-2013008721

PATIENT
  Sex: Female

DRUGS (3)
  1. LYRICA [Suspect]
     Indication: PARAESTHESIA
     Dosage: 50 MG DAILY IN THE EVENING
     Route: 048
     Dates: start: 201212
  2. LYRICA [Suspect]
     Indication: NECK PAIN
  3. LYRICA [Suspect]
     Indication: NERVE INJURY

REACTIONS (2)
  - Somnolence [Unknown]
  - Drug ineffective [Unknown]
